FAERS Safety Report 4417257-3 (Version None)
Quarter: 2004Q3

REPORT INFORMATION
  Report Type: 
  Country: None (occurrence: None)
  Receive Date: 20040806
  Receipt Date: 20040804
  Transmission Date: 20050211
  Serious: Yes (Other)
  Sender: FDA-Public Use
  Company Number: US-GLAXOSMITHKLINE-A0520948A

PATIENT
  Sex: Male

DRUGS (2)
  1. ESKALITH [Suspect]
     Dosage: 300MG TWICE PER DAY
     Route: 048
  2. FLOMAX [Concomitant]

REACTIONS (1)
  - RENAL FAILURE [None]
